FAERS Safety Report 10079959 (Version 1)
Quarter: 2014Q2

REPORT INFORMATION
  Report Type: Spontaneous
  Country: US (occurrence: US)
  Receive Date: 20140415
  Receipt Date: 20140415
  Transmission Date: 20141212
  Serious: No
  Sender: FDA-Public Use
  Company Number: US-ASTRAZENECA-2014SE20838

PATIENT
  Age: 72 Year
  Sex: Female
  Weight: 78 kg

DRUGS (14)
  1. CRESTOR [Suspect]
     Indication: BLOOD CHOLESTEROL ABNORMAL
     Route: 048
     Dates: start: 2007
  2. CRESTOR [Suspect]
     Indication: BLOOD CHOLESTEROL ABNORMAL
     Route: 048
     Dates: end: 201403
  3. CRESTOR [Suspect]
     Indication: BLOOD CHOLESTEROL ABNORMAL
     Route: 048
     Dates: start: 201403
  4. OMEPRAZOLE [Suspect]
     Indication: GASTRIC PH DECREASED
     Route: 048
     Dates: start: 20140320
  5. CLONIPINE [Concomitant]
     Indication: ANXIETY
     Dosage: 0.5 MG TO 1 MG TID
     Route: 048
  6. BABY ASPIRIN [Concomitant]
     Indication: CARDIAC DISORDER
     Dosage: DAILY
     Route: 048
     Dates: end: 20140319
  7. BENADRYL [Concomitant]
     Indication: HAEMORRHOIDS
     Route: 048
  8. BENADRYL [Concomitant]
     Indication: SLEEP DISORDER
     Route: 048
  9. COQ10 [Concomitant]
     Indication: MYALGIA
     Dosage: 60 MG  TO 200 MG DAILY
     Route: 048
  10. CENTRUM SILVER [Concomitant]
     Indication: NUTRITIONAL SUPPLEMENTATION
     Route: 048
  11. FISH OIL [Concomitant]
     Indication: BLOOD CHOLESTEROL ABNORMAL
     Route: 048
  12. VITAMIN D [Concomitant]
     Indication: BONE DISORDER
     Route: 048
  13. CALCIUM [Concomitant]
     Indication: BONE DISORDER
     Route: 048
  14. LIPOFEN [Concomitant]

REACTIONS (9)
  - Cholelithiasis [Not Recovered/Not Resolved]
  - Ulcer [Not Recovered/Not Resolved]
  - Hyperchlorhydria [Not Recovered/Not Resolved]
  - Weight decreased [Not Recovered/Not Resolved]
  - Fear of eating [Not Recovered/Not Resolved]
  - Nervousness [Not Recovered/Not Resolved]
  - Myalgia [Recovered/Resolved]
  - Abdominal pain [Not Recovered/Not Resolved]
  - Intentional product misuse [Unknown]
